FAERS Safety Report 17182038 (Version 3)
Quarter: 2020Q2

REPORT INFORMATION
  Report Type: Spontaneous
  Country: GB (occurrence: GB)
  Receive Date: 20191220
  Receipt Date: 20200403
  Transmission Date: 20200713
  Serious: Yes (Other)
  Sender: FDA-Public Use
  Company Number: GB-EMD SERONO-E2B_90073218

PATIENT
  Age: 9 Year
  Sex: Female
  Weight: 24 kg

DRUGS (7)
  1. AZITHROMYCIN ANHYDROUS. [Concomitant]
     Active Substance: AZITHROMYCIN ANHYDROUS
     Indication: PRODUCT USED FOR UNKNOWN INDICATION
     Dosage: OR 5 TIME WEEKLY IF UNWELL
     Dates: start: 20190128
  2. SOMATROPIN. [Suspect]
     Active Substance: SOMATROPIN
     Indication: SHORT STATURE
     Route: 058
     Dates: start: 20180418
  3. LACTULOSE. [Concomitant]
     Active Substance: LACTULOSE
     Indication: PRODUCT USED FOR UNKNOWN INDICATION
  4. SALBUTAMOL [Concomitant]
     Active Substance: ALBUTEROL
     Indication: PRODUCT USED FOR UNKNOWN INDICATION
     Dosage: 4 TO 6 PUFFS UP TO EVERY 4 HOURS
  5. SALMETEROL [Concomitant]
     Active Substance: SALMETEROL
     Indication: PRODUCT USED FOR UNKNOWN INDICATION
     Dates: start: 20190815
  6. CASSIA SENNA [Concomitant]
     Active Substance: HERBALS\SENNOSIDES
     Indication: PRODUCT USED FOR UNKNOWN INDICATION
  7. CLENIL MODULITE [Concomitant]
     Active Substance: BECLOMETHASONE DIPROPIONATE
     Indication: PRODUCT USED FOR UNKNOWN INDICATION

REACTIONS (4)
  - Stress fracture [Recovered/Resolved]
  - Pain in extremity [Recovered/Resolved]
  - Condition aggravated [Recovered/Resolved]
  - Granuloma [Recovered/Resolved]

NARRATIVE: CASE EVENT DATE: 20180918
